FAERS Safety Report 21467574 (Version 1)
Quarter: 2022Q4

REPORT INFORMATION
  Report Type: Spontaneous
  Country: US (occurrence: US)
  Receive Date: 20221017
  Receipt Date: 20221017
  Transmission Date: 20230113
  Serious: Yes (Death, Other)
  Sender: FDA-Public Use
  Company Number: US-PURDUE PHARMA-USA-2022-0297248

PATIENT
  Age: 62 Year
  Sex: Female

DRUGS (2)
  1. HYDROCODONE BITARTRATE [Suspect]
     Active Substance: HYDROCODONE BITARTRATE
     Indication: Product used for unknown indication
     Route: 065
  2. ACETAMINOPHEN [Suspect]
     Active Substance: ACETAMINOPHEN
     Indication: Product used for unknown indication
     Route: 065

REACTIONS (12)
  - Toxicity to various agents [Fatal]
  - Hepatotoxicity [Unknown]
  - Gastrointestinal haemorrhage [Unknown]
  - Pneumonitis aspiration [Unknown]
  - Acute kidney injury [Unknown]
  - Rhabdomyolysis [Unknown]
  - Coma [Unknown]
  - Depressed level of consciousness [Unknown]
  - Hypotension [Unknown]
  - Agitation [Unknown]
  - Metabolic acidosis [Unknown]
  - Anion gap [Unknown]
